FAERS Safety Report 6697020-3 (Version None)
Quarter: 2010Q2

REPORT INFORMATION
  Report Type: 
  Country: None (occurrence: None)
  Receive Date: 20100426
  Receipt Date: 20100402
  Transmission Date: 20101027
  Serious: No
  Sender: FDA-Public Use
  Company Number: US-B.I. PHARMACEUTICALS,INC./RIDGEFIELD-2010-BP-03874BP

PATIENT
  Sex: Female

DRUGS (10)
  1. SPIRIVA [Suspect]
     Indication: EMPHYSEMA
     Dosage: 18 MCG
     Route: 055
     Dates: start: 20060101
  2. METFORMIN HCL [Concomitant]
     Indication: TYPE 2 DIABETES MELLITUS
  3. PEPCID [Concomitant]
     Indication: HIATUS HERNIA
  4. PREMARIN [Concomitant]
     Indication: MENOPAUSE
  5. MECLIZINE [Concomitant]
     Indication: VERTIGO
  6. ALPRAZOLAM [Concomitant]
     Indication: ANXIETY
  7. LASIX [Concomitant]
     Indication: SYSTEMIC LUPUS ERYTHEMATOSUS
  8. SYNTHROID [Concomitant]
     Indication: THYROID DISORDER
  9. NIFEDIPINE [Concomitant]
     Indication: HYPERTENSION
  10. PROZAC [Concomitant]
     Indication: PANIC ATTACK

REACTIONS (3)
  - ABDOMINAL DISCOMFORT [None]
  - ASTHENIA [None]
  - SLUGGISHNESS [None]
